FAERS Safety Report 8765763 (Version 2)
Quarter: 2013Q2

REPORT INFORMATION
  Report Type: Spontaneous
  Country: US (occurrence: US)
  Receive Date: 20120904
  Receipt Date: 20130404
  Transmission Date: 20140414
  Serious: Yes (Other)
  Sender: FDA-Public Use
  Company Number: US-PFIZER INC-2012214792

PATIENT
  Age: 67 Year
  Sex: Female
  Weight: 100 kg

DRUGS (7)
  1. AROMASIN [Suspect]
     Indication: BREAST CANCER
     Dosage: 1 DF, DAILY
     Route: 048
     Dates: start: 2012, end: 2012
  2. AROMASIN [Suspect]
     Dosage: 1 DF, DAILY
     Route: 048
  3. TAMOXIFEN CITRATE [Suspect]
     Indication: BREAST CANCER
     Dosage: UNK
  4. LISINOPRIL [Concomitant]
     Indication: HYPERTENSION
     Dosage: 10 MG, DAILY
  5. ZOLOFT [Concomitant]
     Indication: DEPRESSION
     Dosage: UNK
  6. LORTAB [Concomitant]
     Dosage: UNK
  7. NEURONTIN [Concomitant]
     Indication: FIBROMYALGIA
     Dosage: UNK

REACTIONS (6)
  - Diabetes mellitus [Unknown]
  - Arthralgia [Not Recovered/Not Resolved]
  - Discomfort [Unknown]
  - Limb discomfort [Unknown]
  - Joint stiffness [Not Recovered/Not Resolved]
  - Pain [Unknown]
